FAERS Safety Report 18389162 (Version 1)
Quarter: 2020Q4

REPORT INFORMATION
  Report Type: Spontaneous
  Country: FR (occurrence: FR)
  Receive Date: 20201015
  Receipt Date: 20201015
  Transmission Date: 20210114
  Serious: Yes (Hospitalization, Other)
  Sender: FDA-Public Use
  Company Number: FR-JNJFOC-20201020713

PATIENT
  Age: 51 Year
  Sex: Female
  Weight: 55.5 kg

DRUGS (5)
  1. TRAMADOL/APAP [Suspect]
     Active Substance: ACETAMINOPHEN\TRAMADOL
     Indication: PRODUCT USED FOR UNKNOWN INDICATION
     Dosage: 10 DOSAGE FORM, ONCE
     Route: 048
     Dates: start: 20200912, end: 20200912
  2. CORTANCYL [Suspect]
     Active Substance: PREDNISONE
     Indication: PRODUCT USED FOR UNKNOWN INDICATION
     Dosage: 10 DOSAGE FORM, ONCE
     Route: 048
     Dates: start: 20200912, end: 20200912
  3. DULOXETINE HYDROCHLORIDE. [Suspect]
     Active Substance: DULOXETINE HYDROCHLORIDE
     Indication: PRODUCT USED FOR UNKNOWN INDICATION
     Dosage: 420 MILLIGRAM, ONCE
     Route: 048
     Dates: start: 20200912, end: 20200912
  4. PRAZEPAM [Suspect]
     Active Substance: PRAZEPAM
     Indication: PRODUCT USED FOR UNKNOWN INDICATION
     Dosage: 200 MILLIGRAM, ONCE
     Route: 048
     Dates: start: 20200912, end: 20200912
  5. GABAPENTINE [Suspect]
     Active Substance: GABAPENTIN
     Indication: PRODUCT USED FOR UNKNOWN INDICATION
     Dosage: 2.4 GRAM, ONCE
     Route: 048
     Dates: start: 20200912, end: 20200912

REACTIONS (3)
  - Coma [Recovered/Resolved]
  - Poisoning deliberate [Unknown]
  - Overdose [Unknown]

NARRATIVE: CASE EVENT DATE: 20200912
